FAERS Safety Report 9786402 (Version 2)
Quarter: 2014Q1

REPORT INFORMATION
  Report Type: Spontaneous
  Country: IT (occurrence: None)
  Receive Date: 20131224
  Receipt Date: 20140228
  Transmission Date: 20141002
  Serious: Yes (Hospitalization)
  Sender: FDA-Public Use
  Company Number: AUR-APL-2013-10607

PATIENT
  Age: 80 Year
  Sex: Male

DRUGS (1)
  1. METOPROLOL (METOPROLOL) [Suspect]
     Indication: HYPERTENSION
     Dosage: 1 DOSAGE FORMS (1 DOSAGE FORMS, 1 IN 1 D), ORAL
     Route: 048
     Dates: start: 20120913, end: 20120912

REACTIONS (2)
  - Hyperkalaemia [None]
  - Sinus bradycardia [None]
